FAERS Safety Report 23947619 (Version 1)
Quarter: 2024Q2

REPORT INFORMATION
  Report Type: Spontaneous
  Country: NL (occurrence: NL)
  Receive Date: 20240606
  Receipt Date: 20240606
  Transmission Date: 20240716
  Serious: Yes (Other)
  Sender: FDA-Public Use
  Company Number: None

PATIENT
  Age: 87 Year
  Sex: Male
  Weight: 72 kg

DRUGS (1)
  1. TAMSULOSIN [Suspect]
     Active Substance: TAMSULOSIN
     Indication: Pollakiuria
     Dosage: TAMSULOSIN  / BRAND NAME NOT SPECIFIED
     Route: 065
     Dates: start: 20240310, end: 20240501

REACTIONS (1)
  - Anal incontinence [Recovered/Resolved]
